FAERS Safety Report 15278547 (Version 4)
Quarter: 2018Q3

REPORT INFORMATION
  Report Type: Report from Study
  Country: None (occurrence: HU)
  Receive Date: 20180815
  Receipt Date: 20180926
  Transmission Date: 20181010
  Serious: Yes (Death, Hospitalization, Other)
  Sender: FDA-Public Use
  Company Number: HU-ABBVIE-18S-076-2446342-00

PATIENT
  Age: 73 Year
  Sex: Male
  Weight: 80 kg

DRUGS (1)
  1. DUODOPA [Suspect]
     Active Substance: CARBIDOPA\LEVODOPA
     Indication: PRODUCT USED FOR UNKNOWN INDICATION
     Dosage: MORNING DOSE 1.6 ML; CONTINUOUS DOSE 3.5 ML/H;EXTRA DOSE 0.8 ML
     Route: 050
     Dates: start: 20140724

REACTIONS (8)
  - Arteriosclerosis [Unknown]
  - Parkinson^s disease [Recovering/Resolving]
  - Mobility decreased [Recovering/Resolving]
  - Decreased appetite [Recovering/Resolving]
  - Respiratory failure [Fatal]
  - Pneumonia [Unknown]
  - Speech disorder [Recovering/Resolving]
  - General physical health deterioration [Fatal]

NARRATIVE: CASE EVENT DATE: 2018
